FAERS Safety Report 6359482-0 (Version None)
Quarter: 2009Q3

REPORT INFORMATION
  Report Type: 
  Country: None (occurrence: None)
  Receive Date: 20090914
  Receipt Date: 20090827
  Transmission Date: 20100115
  Serious: Yes (Other)
  Sender: FDA-Public Use
  Company Number: UK_TT_09_00002

PATIENT
  Age: 13 Year
  Sex: Male

DRUGS (7)
  1. DEXRAZOXANE (BRAND NAME UNKNOWN) [Suspect]
  2. CYCLOPHOSPHAMIDE [Concomitant]
  3. CYTARABINE [Concomitant]
  4. DOXORUBICIN HCL [Concomitant]
  5. RITUXIMAB [Concomitant]
  6. THIOGUANINE [Concomitant]
  7. VINCRISTINE [Concomitant]

REACTIONS (8)
  - CARDIOVASCULAR DISORDER [None]
  - GRAFT COMPLICATION [None]
  - HEART TRANSPLANT [None]
  - MUSCLE CONTRACTIONS INVOLUNTARY [None]
  - PNEUMOCYSTIS JIROVECI PNEUMONIA [None]
  - SEPSIS [None]
  - STAPHYLOCOCCAL BACTERAEMIA [None]
  - TIC [None]
